FAERS Safety Report 12856047 (Version 2)
Quarter: 2016Q4

REPORT INFORMATION
  Report Type: Spontaneous
  Country: US (occurrence: US)
  Receive Date: 20161018
  Receipt Date: 20161123
  Transmission Date: 20170207
  Serious: No
  Sender: FDA-Public Use
  Company Number: US-009507513-1609USA013640

PATIENT
  Age: 56 Year
  Sex: Male

DRUGS (3)
  1. INTRON A [Suspect]
     Active Substance: INTERFERON ALFA-2B
     Indication: MALIGNANT MELANOMA
     Dosage: 46.6 MILLION UNITS
     Route: 042
     Dates: start: 20160926
  2. INTRON A [Suspect]
     Active Substance: INTERFERON ALFA-2B
     Indication: MALIGNANT MELANOMA
     Dosage: 46.6 MILLION IU, UNK
     Route: 042
     Dates: start: 20160919
  3. INTRON A [Suspect]
     Active Substance: INTERFERON ALFA-2B
     Dosage: UNK
     Route: 042
     Dates: start: 20161014

REACTIONS (9)
  - Rash [Unknown]
  - Wrong drug administered [Unknown]
  - Pain [Unknown]
  - Product dosage form confusion [Unknown]
  - Wrong drug administered [Unknown]
  - Discomfort [Unknown]
  - Drug dispensing error [Unknown]
  - Peripheral coldness [Unknown]
  - Product label confusion [Unknown]

NARRATIVE: CASE EVENT DATE: 2016
